FAERS Safety Report 14100567 (Version 1)
Quarter: 2017Q4

REPORT INFORMATION
  Report Type: Spontaneous
  Country: US (occurrence: US)
  Receive Date: 20171017
  Receipt Date: 20171017
  Transmission Date: 20180321
  Serious: No
  Sender: FDA-Public Use
  Company Number: US-009507513-1710USA008306

PATIENT
  Sex: Female

DRUGS (1)
  1. JANUVIA [Suspect]
     Active Substance: SITAGLIPTIN PHOSPHATE
     Dosage: UNK
     Route: 048
     Dates: end: 201707

REACTIONS (3)
  - Malaise [Unknown]
  - Nervousness [Unknown]
  - Drug dose omission [Unknown]

NARRATIVE: CASE EVENT DATE: 201707
